FAERS Safety Report 8601801-6 (Version None)
Quarter: 2012Q3

REPORT INFORMATION
  Report Type: 
  Country: None (occurrence: None)
  Receive Date: 20120817
  Receipt Date: 20120606
  Transmission Date: 20120928
  Serious: No
  Sender: FDA-Public Use
  Company Number: US-BRISTOL-MYERS SQUIBB COMPANY-16534620

PATIENT
  Age: 70 Year
  Sex: Male
  Weight: 79 kg

DRUGS (1)
  1. SPRYCEL [Suspect]
     Indication: CHRONIC MYELOID LEUKAEMIA
     Dosage: STARTED: 1 WEEK AND 6 DAYS AGO
     Dates: start: 20120405

REACTIONS (7)
  - DIARRHOEA [None]
  - DYSPNOEA [None]
  - LUNG DISORDER [None]
  - CHEST PAIN [None]
  - CONSTIPATION [None]
  - FATIGUE [None]
  - DECREASED APPETITE [None]
